FAERS Safety Report 9334120 (Version 4)
Quarter: 2013Q3

REPORT INFORMATION
  Report Type: Report from Study
  Country: FR (occurrence: FR)
  Receive Date: 20130606
  Receipt Date: 20130826
  Transmission Date: 20140515
  Serious: Yes (Life-Threatening)
  Sender: FDA-Public Use
  Company Number: FR-TEVA-409970USA

PATIENT
  Age: 64 Year
  Sex: Male
  Weight: 60 kg

DRUGS (10)
  1. LEVACT [Suspect]
     Indication: CHRONIC LYMPHOCYTIC LEUKAEMIA
     Dosage: CYCLE 1
  2. LEVACT [Suspect]
     Dosage: CYCLE 2
     Dates: start: 20130325
  3. ARZERRA [Suspect]
     Indication: CHRONIC LYMPHOCYTIC LEUKAEMIA
     Dosage: CYCLE 1
     Route: 041
     Dates: start: 20130219
  4. ARZERRA [Suspect]
     Dosage: CYCLE 2 ON D1 AND D15
     Route: 041
     Dates: start: 20130325
  5. METHYLPREDNISOLONE [Suspect]
     Indication: CHRONIC LYMPHOCYTIC LEUKAEMIA
     Dosage: CYCLE 1 ON D1 AND D15
  6. METHYLPREDNISOLONE [Suspect]
     Dosage: CYCLE 2 OF DAY 1
     Dates: start: 20130325
  7. METHYLPREDNISOLONE [Suspect]
     Dosage: CYCLE 2 OF DAY 15
     Dates: start: 20130408
  8. ZELITREX [Concomitant]
     Dosage: 500 MILLIGRAM DAILY;
     Route: 048
     Dates: start: 20130219
  9. BACTRIM [Concomitant]
     Dosage: 1 DOSAGE FORMS DAILY;
     Route: 048
     Dates: start: 20130219
  10. TEMESTA [Concomitant]
     Dosage: 1 MILLIGRAM DAILY;
     Route: 048

REACTIONS (1)
  - Progressive multifocal leukoencephalopathy [Not Recovered/Not Resolved]
